FAERS Safety Report 10373370 (Version 2)
Quarter: 2019Q3

REPORT INFORMATION
  Report Type: Spontaneous
  Country: US (occurrence: US)
  Receive Date: 20140808
  Receipt Date: 20190705
  Transmission Date: 20191004
  Serious: No
  Sender: FDA-Public Use
  Company Number: US-BRISTOL-MYERS SQUIBB COMPANY-20549853

PATIENT
  Sex: Female
  Weight: 103.85 kg

DRUGS (2)
  1. SPRYCEL [Suspect]
     Active Substance: DASATINIB
     Indication: PRODUCT USED FOR UNKNOWN INDICATION
     Dosage: 80 UNK
     Route: 065
  2. SPRYCEL [Suspect]
     Active Substance: DASATINIB
     Indication: CHRONIC MYELOID LEUKAEMIA
     Dosage: 100 MILLIGRAM
     Route: 065

REACTIONS (4)
  - Adverse drug reaction [Unknown]
  - Rash generalised [Recovered/Resolved]
  - Malaise [Unknown]
  - Nausea [Recovered/Resolved]
